FAERS Safety Report 4877866-4 (Version None)
Quarter: 2006Q1

REPORT INFORMATION
  Report Type: 
  Country: None (occurrence: None)
  Receive Date: 20060109
  Receipt Date: 20051226
  Transmission Date: 20060701
  Serious: Yes (Hospitalization)
  Sender: FDA-Public Use
  Company Number: 02100-JPN-05-0665

PATIENT
  Age: 68 Year
  Sex: Male

DRUGS (21)
  1. CILOSTAZOL [Suspect]
     Indication: LACUNAR INFARCTION
     Dosage: 200 MG, ORAL
     Route: 048
     Dates: start: 20041202
  2. MILNACIPRAN  HYDROCHLORIDE) [Suspect]
     Dosage: 50 MG, ORAL
     Route: 048
     Dates: start: 20050607, end: 20050610
  3. FAMOTIDINE [Concomitant]
  4. MAGNESIUM OXIDE [Concomitant]
  5. ZOLPIDEM TARTRATE [Concomitant]
  6. AMLODIPINE BESYLATE [Concomitant]
  7. VALSARTAN [Concomitant]
  8. HUMAN INSULIN (GENETICAL RECOMBINATION) [Concomitant]
  9. NON-PYRINE PREPARATION FOR COLD SYNDROME [Concomitant]
  10. CEFCAPENE PIVOXIL HYDROCHLORIDE [Concomitant]
  11. AMBROXOL HYDROCHLORIDE [Concomitant]
  12. SENNOSIDE [Concomitant]
  13. CLARITHROMYCIN [Concomitant]
  14. TRANEXAMIC ACID [Concomitant]
  15. SERRAPEPTASE [Concomitant]
  16. RABEPRAZOLE SODIUM [Concomitant]
  17. SULPIRIDE [Concomitant]
  18. MOSAPRIDE CITRATE [Concomitant]
  19. DAI-KENCHU-TO [Concomitant]
  20. DAIO-KANZO-TO [Concomitant]
  21. FLUVOXAMINE MALEATE [Concomitant]

REACTIONS (7)
  - AUTONOMIC NERVOUS SYSTEM IMBALANCE [None]
  - DEPRESSION [None]
  - DIABETIC NEPHROPATHY [None]
  - DISEASE PROGRESSION [None]
  - ILEUS PARALYTIC [None]
  - NASOPHARYNGITIS [None]
  - NEPHROGENIC ANAEMIA [None]
